FAERS Safety Report 5505426-0 (Version None)
Quarter: 2007Q4

REPORT INFORMATION
  Report Type: 
  Country: None (occurrence: None)
  Receive Date: 20071102
  Receipt Date: 20071018
  Transmission Date: 20080405
  Serious: Yes (Hospitalization)
  Sender: FDA-Public Use
  Company Number: FR-GENENTECH-249893

PATIENT
  Sex: Male

DRUGS (2)
  1. LUCENTIS [Suspect]
     Indication: EYE DISORDER
     Dosage: 1 DF, 1/MONTH
     Route: 031
     Dates: start: 20070801
  2. HEPARIN [Suspect]
     Indication: ATRIAL FIBRILLATION
     Dates: start: 20070801

REACTIONS (4)
  - LIVEDO RETICULARIS [None]
  - PAIN IN EXTREMITY [None]
  - PERIPHERAL EMBOLISM [None]
  - PERIPHERAL ISCHAEMIA [None]
